FAERS Safety Report 11136435 (Version 1)
Quarter: 2015Q2

REPORT INFORMATION
  Report Type: Spontaneous
  Country: GB (occurrence: GB)
  Receive Date: 20150526
  Receipt Date: 20150526
  Transmission Date: 20150821
  Serious: Yes (Other)
  Sender: FDA-Public Use
  Company Number: GB-INTERMUNE, INC.-201505IM016447

PATIENT
  Age: 76 Year
  Sex: Male
  Weight: 71.66 kg

DRUGS (3)
  1. ESBRIET [Suspect]
     Active Substance: PIRFENIDONE
     Dosage: 1602 MG
     Route: 048
     Dates: start: 20141230
  2. ESBRIET [Suspect]
     Active Substance: PIRFENIDONE
     Dosage: 801 MG
     Route: 048
     Dates: start: 201412, end: 20141230
  3. ESBRIET [Suspect]
     Active Substance: PIRFENIDONE
     Indication: IDIOPATHIC PULMONARY FIBROSIS
     Dosage: 1602 MG
     Route: 048
     Dates: start: 20141108, end: 201412

REACTIONS (4)
  - Peripheral coldness [Not Recovered/Not Resolved]
  - Gastric disorder [Not Recovered/Not Resolved]
  - Decreased appetite [Not Recovered/Not Resolved]
  - Abnormal loss of weight [Not Recovered/Not Resolved]

NARRATIVE: CASE EVENT DATE: 20141108
